FAERS Safety Report 4711214-5 (Version None)
Quarter: 2005Q3

REPORT INFORMATION
  Report Type: 
  Country: None (occurrence: None)
  Receive Date: 20050708
  Receipt Date: 20050623
  Transmission Date: 20060218
  Serious: Yes (Death)
  Sender: FDA-Public Use
  Company Number: 2005FR-00057

PATIENT
  Age: 49 Year
  Sex: Male

DRUGS (1)
  1. FLUOXETINE [Suspect]
     Indication: DEPRESSION
     Dosage: 20MG, ORAL
     Route: 048
     Dates: start: 20050402, end: 20050427

REACTIONS (3)
  - AGITATION [None]
  - SLEEP DISORDER [None]
  - SUICIDAL IDEATION [None]
